FAERS Safety Report 20300206 (Version 2)
Quarter: 2022Q1

REPORT INFORMATION
  Report Type: Report from Study
  Country: TW (occurrence: None)
  Receive Date: 20220105
  Receipt Date: 20220114
  Transmission Date: 20220423
  Serious: No
  Sender: FDA-Public Use
  Company Number: TW-Merck Healthcare KGaA-9290267

PATIENT
  Age: 16 Year
  Sex: Male

DRUGS (3)
  1. SAIZEN [Suspect]
     Active Substance: SOMATROPIN
     Indication: Short stature
     Dosage: 12MG/1.5 ML (36IU)
     Route: 058
     Dates: start: 2019
  2. ZINGA [ZINC GLUCONATE] [Concomitant]
     Indication: Product used for unknown indication
     Route: 048
  3. CATAPRES [Concomitant]
     Active Substance: CLONIDINE HYDROCHLORIDE
     Indication: Product used for unknown indication
     Route: 048

REACTIONS (8)
  - Precocious puberty [Unknown]
  - Malabsorption [Unknown]
  - Zinc deficiency [Unknown]
  - Acne [Unknown]
  - Dermatitis [Unknown]
  - Anaemia folate deficiency [Unknown]
  - Headache [Unknown]
  - Off label use [Unknown]
